FAERS Safety Report 20943054 (Version 1)
Quarter: 2022Q2

REPORT INFORMATION
  Report Type: Report from Study
  Country: US (occurrence: US)
  Receive Date: 20220610
  Receipt Date: 20220610
  Transmission Date: 20220720
  Serious: Yes (Other)
  Sender: FDA-Public Use
  Company Number: US-GILEAD-2022-0584028

PATIENT
  Sex: Female

DRUGS (4)
  1. AZTREONAM LYSINE [Suspect]
     Active Substance: AZTREONAM LYSINE
     Indication: Product used for unknown indication
     Dosage: 75 MG, TID, 28 DAYS ON 28 DAYS OFF
     Route: 055
  2. PULMICORT TURBUHALER [Concomitant]
     Active Substance: BUDESONIDE
  3. ALBUTEROL [Concomitant]
     Active Substance: ALBUTEROL
  4. PERFOROMIST [Concomitant]
     Active Substance: FORMOTEROL FUMARATE DIHYDRATE

REACTIONS (1)
  - Large intestine perforation [Unknown]
